FAERS Safety Report 10258986 (Version 2)
Quarter: 2014Q2

REPORT INFORMATION
  Report Type: Spontaneous
  Country: US (occurrence: US)
  Receive Date: 20140625
  Receipt Date: 20140625
  Transmission Date: 20141212
  Serious: No
  Sender: FDA-Public Use
  Company Number: US-ASTELLAS-2013US010698

PATIENT
  Age: 52 Year
  Sex: Female

DRUGS (3)
  1. VESICARE [Suspect]
     Indication: URGE INCONTINENCE
     Route: 048
     Dates: start: 201306
  2. VESICARE [Suspect]
     Route: 048
  3. VESICARE [Suspect]
     Route: 048

REACTIONS (4)
  - Drug dispensing error [Unknown]
  - Drug ineffective [Unknown]
  - Micturition urgency [Recovering/Resolving]
  - Dry mouth [Recovered/Resolved]
